FAERS Safety Report 8458765-8 (Version None)
Quarter: 2012Q2

REPORT INFORMATION
  Report Type: 
  Country: None (occurrence: None)
  Receive Date: 20120622
  Receipt Date: 20120608
  Transmission Date: 20120825
  Serious: Yes (Other)
  Sender: FDA-Public Use
  Company Number: DE-SHIRE-ALL1-2012-02385

PATIENT
  Sex: Female

DRUGS (1)
  1. FOSRENOL [Suspect]
     Indication: PRODUCT USED FOR UNKNOWN INDICATION
     Dosage: 1000 MG, ONE DOSE
     Route: 048

REACTIONS (3)
  - OFF LABEL USE [None]
  - ANAPHYLACTIC SHOCK [None]
  - ABDOMINAL DISCOMFORT [None]
